FAERS Safety Report 13484951 (Version 1)
Quarter: 2017Q2

REPORT INFORMATION
  Report Type: Spontaneous
  Country: US (occurrence: US)
  Receive Date: 20170426
  Receipt Date: 20170426
  Transmission Date: 20170830
  Serious: Yes (Other)
  Sender: FDA-Public Use
  Company Number: US-ROCHE-1923232

PATIENT
  Age: 80 Year
  Sex: Female

DRUGS (1)
  1. PIRFENIDONE [Suspect]
     Active Substance: PIRFENIDONE
     Indication: INTERSTITIAL LUNG DISEASE
     Route: 065

REACTIONS (4)
  - Fatigue [Not Recovered/Not Resolved]
  - Hyponatraemia [Recovered/Resolved]
  - Dyspepsia [Not Recovered/Not Resolved]
  - Decreased appetite [Not Recovered/Not Resolved]
